FAERS Safety Report 7825845-7 (Version None)
Quarter: 2011Q4

REPORT INFORMATION
  Report Type: 
  Country: None (occurrence: None)
  Receive Date: 20111019
  Receipt Date: 20111007
  Transmission Date: 20120403
  Serious: Yes (Other)
  Sender: FDA-Public Use
  Company Number: US-ASTRAZENECA-2011SE44446

PATIENT
  Age: 57 Year
  Sex: Male
  Weight: 77.1 kg

DRUGS (9)
  1. PULMICORT FLEXHALER [Suspect]
     Indication: ASTHMA
     Dosage: 180 UG, TWO PUFFS TWO TIMES A DAY
     Route: 055
     Dates: start: 20101111
  2. SINGULAIR [Concomitant]
     Indication: ASTHMA
     Route: 048
  3. SYMBICORT [Suspect]
     Indication: ASTHMA
     Dosage: 160/4.5 UG, TWO PUFFS TWO TIMES A DAY
     Route: 055
     Dates: start: 20080424
  4. BUSPAR [Concomitant]
  5. ALBUTEROL [Concomitant]
     Indication: ASTHMA
     Dosage: AS NEEDED
     Route: 055
  6. ZYRTEC [Concomitant]
     Route: 048
  7. NEXIUM [Suspect]
     Route: 048
  8. ASPIRIN [Concomitant]
  9. ZYRTEC [Concomitant]
     Indication: PRURITUS
     Route: 048

REACTIONS (6)
  - DEAFNESS UNILATERAL [None]
  - BLOOD TESTOSTERONE DECREASED [None]
  - FATIGUE [None]
  - ASTHMA [None]
  - STRESS [None]
  - DEPRESSION [None]
